FAERS Safety Report 13022780 (Version 1)
Quarter: 2016Q4

REPORT INFORMATION
  Report Type: Spontaneous
  Country: FR (occurrence: FR)
  Receive Date: 20161213
  Receipt Date: 20161213
  Transmission Date: 20170207
  Serious: Yes (Hospitalization, Other)
  Sender: FDA-Public Use
  Company Number: FR-PFIZER INC-2016571685

PATIENT
  Age: 72 Year
  Sex: Male

DRUGS (5)
  1. TAHOR [Suspect]
     Active Substance: ATORVASTATIN CALCIUM
     Indication: CEREBROVASCULAR ACCIDENT PROPHYLAXIS
     Dosage: 40 MG, 1X/DAY
     Route: 048
  2. MECIR [Concomitant]
     Active Substance: TAMSULOSIN HYDROCHLORIDE
  3. AMLOR [Suspect]
     Active Substance: AMLODIPINE BESYLATE
     Dosage: 10 MG, 1X/DAY
     Route: 048
     Dates: end: 20161118
  4. PLAVIX [Suspect]
     Active Substance: CLOPIDOGREL BISULFATE
     Dosage: 75 MG, 1X/DAY
     Dates: end: 20161112
  5. COVERAM [Suspect]
     Active Substance: AMLODIPINE\PERINDOPRIL
     Dosage: 1 DF (5 MG/5 MG TABLET), 1X/DAY
     Route: 048

REACTIONS (1)
  - Normochromic normocytic anaemia [Not Recovered/Not Resolved]

NARRATIVE: CASE EVENT DATE: 201511
